FAERS Safety Report 5672056-X (Version None)
Quarter: 2008Q1

REPORT INFORMATION
  Report Type: 
  Country: None (occurrence: None)
  Receive Date: 20080317
  Receipt Date: 20080317
  Transmission Date: 20080703
  Serious: Yes (Hospitalization)
  Sender: FDA-Public Use
  Company Number: None

PATIENT
  Sex: Female
  Weight: 65.4 kg

DRUGS (2)
  1. FLUOROURACIL [Suspect]
     Dosage: 4000 MG
  2. MITOMYCIN [Suspect]
     Dosage: 16 MG

REACTIONS (7)
  - CATHETER RELATED COMPLICATION [None]
  - CHEST PAIN [None]
  - PAIN IN EXTREMITY [None]
  - PALPITATIONS [None]
  - PRODUCTIVE COUGH [None]
  - SINUS TACHYCARDIA [None]
  - WHEEZING [None]
